FAERS Safety Report 4583745-2 (Version None)
Quarter: 2005Q1

REPORT INFORMATION
  Report Type: 
  Country: None (occurrence: None)
  Receive Date: 20050211
  Receipt Date: 20050131
  Transmission Date: 20050727
  Serious: No
  Sender: FDA-Public Use
  Company Number: 2005UW01685

PATIENT
  Age: 83 Year
  Sex: Female

DRUGS (4)
  1. NAROPIN [Suspect]
     Indication: NERVE BLOCK
     Dosage: 75 MG ONCE RNB
  2. NAROPIN [Suspect]
     Indication: SURGERY
     Dosage: 75 MG ONCE RNB
  3. XYLOCAINE W/ EPINEPHRINE [Suspect]
     Indication: NERVE BLOCK
     Dosage: 300 MG ONCE RNB
  4. XYLOCAINE W/ EPINEPHRINE [Suspect]
     Indication: SURGERY
     Dosage: 300 MG ONCE RNB

REACTIONS (4)
  - MONOPLEGIA [None]
  - NEUROLYSIS CHEMICAL [None]
  - POST PROCEDURAL COMPLICATION [None]
  - PROCEDURAL COMPLICATION [None]
